FAERS Safety Report 4672421-3 (Version None)
Quarter: 2005Q2

REPORT INFORMATION
  Report Type: 
  Country: None (occurrence: None)
  Receive Date: 20050524
  Receipt Date: 20040730
  Transmission Date: 20051028
  Serious: Yes (Other)
  Sender: FDA-Public Use
  Company Number: PHHO2004RU10770

PATIENT
  Age: 68 Year
  Sex: Female
  Weight: 66 kg

DRUGS (8)
  1. ZOLEDRONATE VS PLACEBO [Suspect]
     Indication: OSTEOPOROSIS POSTMENOPAUSAL
     Dosage: DOUBLE-BLIND
     Route: 042
     Dates: start: 20020620
  2. CALCIUM GLUCONATE [Concomitant]
     Indication: OSTEOPOROSIS POSTMENOPAUSAL
  3. VITAMIN D3 [Concomitant]
     Indication: OSTEOPOROSIS POSTMENOPAUSAL
  4. L-THYROXIN [Concomitant]
  5. PANZYNORM FORTE [Concomitant]
  6. KREON [Concomitant]
  7. FAMOTIDINE [Concomitant]
  8. MEZYM FORTE [Concomitant]

REACTIONS (2)
  - LYMPHADENOPATHY [None]
  - MEDULLARY THYROID CANCER [None]
